FAERS Safety Report 9192341 (Version 1)
Quarter: 2013Q1

REPORT INFORMATION
  Report Type: Spontaneous
  Country: US (occurrence: US)
  Receive Date: 20130327
  Receipt Date: 20130327
  Transmission Date: 20140127
  Serious: Yes (Death)
  Sender: FDA-Public Use
  Company Number: US-TEVA-394699USA

PATIENT
  Age: 36 Year
  Sex: Male

DRUGS (5)
  1. ACTIQ [Suspect]
  2. ACETAMINOPHEN W/HYDROCODONE [Suspect]
  3. OTHER TYPES OF SKELETAL MUSCLE RELAXANT [Suspect]
  4. OTHER ANTIHISTAMINES [Suspect]
  5. OTHER TYPES OF ANTIDEPRESSANT [Suspect]

REACTIONS (2)
  - Drug abuse [Fatal]
  - Death [Fatal]
